FAERS Safety Report 9854874 (Version 1)
Quarter: 2014Q1

REPORT INFORMATION
  Report Type: Spontaneous
  Country: BR (occurrence: BR)
  Receive Date: 20140130
  Receipt Date: 20140130
  Transmission Date: 20141002
  Serious: Yes (Other)
  Sender: FDA-Public Use
  Company Number: BR-AMGEN-BRASP2014005938

PATIENT
  Age: 55 Year
  Sex: Female
  Weight: 40 kg

DRUGS (5)
  1. ENBREL [Suspect]
     Indication: RHEUMATOID ARTHRITIS
     Dosage: 50 MG, WEEKLY
     Route: 058
     Dates: start: 201307, end: 201310
  2. DORMONID                           /00634101/ [Concomitant]
     Dosage: 15 MG (1 TABLET), ONCE AT NIGHT
     Route: 048
  3. BROMAZEPAM [Concomitant]
     Dosage: 6 MG (1 TABLET), ONCE A DAY
     Route: 048
  4. RIVOTRIL [Concomitant]
     Dosage: 0.5 MG (1 TABLET), ONCE A DAY
     Route: 048
  5. EZETIMIBE [Concomitant]
     Dosage: 10 MG (1 TABLET), ONCE A DAY
     Route: 048

REACTIONS (9)
  - Visual acuity reduced [Unknown]
  - Vision blurred [Unknown]
  - Syncope [Unknown]
  - Skin plaque [Unknown]
  - Erythema [Unknown]
  - Swelling [Unknown]
  - Hypersensitivity [Unknown]
  - Pruritus [Unknown]
  - Injection site pruritus [Unknown]
